FAERS Safety Report 13992919 (Version 1)
Quarter: 2017Q3

REPORT INFORMATION
  Report Type: Spontaneous
  Country: GB (occurrence: GB)
  Receive Date: 20170920
  Receipt Date: 20170920
  Transmission Date: 20171128
  Serious: Yes (Other)
  Sender: FDA-Public Use
  Company Number: PHHY2017GB135847

PATIENT
  Age: 51 Year
  Sex: Male

DRUGS (2)
  1. SUCCIMER [Concomitant]
     Active Substance: SUCCIMER
     Indication: EXPOSURE TO LEAD
     Dosage: 30 MG/KG, QD
     Route: 048
  2. AMOXICILLIN. [Suspect]
     Active Substance: AMOXICILLIN
     Indication: PRODUCT USED FOR UNKNOWN INDICATION
     Route: 048

REACTIONS (2)
  - Lip swelling [Recovered/Resolved]
  - Rash erythematous [Recovered/Resolved]
